FAERS Safety Report 19591464 (Version 4)
Quarter: 2021Q3

REPORT INFORMATION
  Report Type: Spontaneous
  Country: JP (occurrence: JP)
  Receive Date: 20210721
  Receipt Date: 20210916
  Transmission Date: 20211014
  Serious: Yes (Death, Life-Threatening, Hospitalization)
  Sender: FDA-Public Use
  Company Number: JP-BAYER-2021-173067

PATIENT
  Age: 82 Year
  Sex: Female
  Weight: 40.2 kg

DRUGS (5)
  1. STIVARGA [Suspect]
     Active Substance: REGORAFENIB
     Indication: COLORECTAL CANCER RECURRENT
     Dosage: 2 TABLETS DAILY, 3?WEEK TREATMENT FOLLOWED BY 1?WEEK REST PERIOD
     Route: 048
     Dates: start: 20210621, end: 20210705
  2. AMLODIPINE OD TYK [Concomitant]
     Active Substance: AMLODIPINE BESYLATE
     Dosage: 5 DAILY
     Route: 048
  3. BETANIS [Concomitant]
     Active Substance: MIRABEGRON
     Dosage: 100 DAILY
     Route: 048
  4. EBRANTIL KAKEN [Concomitant]
     Dosage: 30 DAILY
     Route: 048
  5. CALONAL [Concomitant]
     Active Substance: ACETAMINOPHEN
     Dosage: 300 DAILY
     Route: 048

REACTIONS (5)
  - Off label use [None]
  - Anuria [Fatal]
  - Postrenal failure [Fatal]
  - Urinary tract disorder [Fatal]
  - Rectal cancer [Fatal]

NARRATIVE: CASE EVENT DATE: 20210621
